FAERS Safety Report 19369844 (Version 1)
Quarter: 2021Q2

REPORT INFORMATION
  Report Type: Spontaneous
  Country: DE (occurrence: DE)
  Receive Date: 20210604
  Receipt Date: 20210604
  Transmission Date: 20210717
  Serious: Yes (Other)
  Sender: FDA-Public Use
  Company Number: DE-AUROBINDO-AUR-APL-2021-022132

PATIENT
  Sex: Male

DRUGS (5)
  1. VALPROATE [Suspect]
     Active Substance: VALPROIC ACID
     Indication: EPILEPSY WITH MYOCLONIC-ATONIC SEIZURES
     Dosage: UNK
     Route: 065
  2. ETHOSUXIMIDE. [Suspect]
     Active Substance: ETHOSUXIMIDE
     Indication: EPILEPSY WITH MYOCLONIC-ATONIC SEIZURES
     Dosage: UNK
     Route: 065
     Dates: end: 201901
  3. LAMOTRIGINE. [Suspect]
     Active Substance: LAMOTRIGINE
     Indication: EPILEPSY WITH MYOCLONIC-ATONIC SEIZURES
     Dosage: UNK
     Route: 065
     Dates: end: 201001
  4. TOPIRAMATE. [Suspect]
     Active Substance: TOPIRAMATE
     Indication: EPILEPSY WITH MYOCLONIC-ATONIC SEIZURES
     Dosage: UNK
     Route: 065
  5. LEVETIRACETAM. [Suspect]
     Active Substance: LEVETIRACETAM
     Indication: EPILEPSY WITH MYOCLONIC-ATONIC SEIZURES
     Dosage: UNK
     Route: 065

REACTIONS (4)
  - Product administered to patient of inappropriate age [Unknown]
  - Encephalopathy [Unknown]
  - Drug ineffective [Unknown]
  - Off label use [Unknown]
